FAERS Safety Report 10168952 (Version 1)
Quarter: 2014Q2

REPORT INFORMATION
  Report Type: Spontaneous
  Country: US (occurrence: None)
  Receive Date: 20140509
  Receipt Date: 20140509
  Transmission Date: 20141212
  Serious: Yes (Hospitalization)
  Sender: FDA-Public Use
  Company Number: 1713747-2014-99963

PATIENT
  Sex: Male

DRUGS (3)
  1. DELFLEX PD [Suspect]
     Indication: RENAL FAILURE CHRONIC
     Route: 033
  2. LIBERTY CYCLER [Concomitant]
  3. LIBERTY CYCLER CASSETTE [Concomitant]

REACTIONS (3)
  - Peritonitis [None]
  - Device occlusion [None]
  - Procedural complication [None]
